FAERS Safety Report 23438406 (Version 2)
Quarter: 2025Q1

REPORT INFORMATION
  Report Type: Spontaneous
  Country: US (occurrence: US)
  Receive Date: 20240124
  Receipt Date: 20250327
  Transmission Date: 20250409
  Serious: Yes (Hospitalization)
  Sender: TEVA
  Company Number: US-TEVA-VS-3148381

PATIENT
  Age: 60 Year
  Sex: Female

DRUGS (1)
  1. LEVOTHYROXINE [Suspect]
     Active Substance: LEVOTHYROXINE
     Indication: Hypothyroidism
     Route: 065

REACTIONS (5)
  - Myxoedema [Recovered/Resolved]
  - Treatment noncompliance [Recovered/Resolved]
  - Psychotic disorder [Recovered/Resolved]
  - Intentional product misuse [Recovered/Resolved]
  - Withdrawal syndrome [Recovered/Resolved]
